FAERS Safety Report 10409510 (Version 2)
Quarter: 2014Q3

REPORT INFORMATION
  Report Type: Spontaneous
  Country: US (occurrence: US)
  Receive Date: 20140826
  Receipt Date: 20140826
  Transmission Date: 20150326
  Serious: Yes (Hospitalization, Other)
  Sender: FDA-Public Use
  Company Number: US-INCYTE CORPORATION-2014IN001732

PATIENT
  Age: 70 Year
  Sex: Female
  Weight: 53 kg

DRUGS (19)
  1. JAKAFI [Suspect]
     Active Substance: RUXOLITINIB
     Indication: MYELOFIBROSIS
     Dosage: 5 MG, BID
     Route: 048
     Dates: start: 20131024, end: 20140615
  2. BENADRYL [Concomitant]
     Active Substance: DIPHENHYDRAMINE HYDROCHLORIDE
     Indication: PRURITUS
     Dosage: 25 MG, P.R.N
  3. CAMPHOR [Concomitant]
     Active Substance: CAMPHOR
  4. TYLENOL [Concomitant]
     Active Substance: ACETAMINOPHEN
     Dosage: P.R.N
  5. PEPCID [Concomitant]
     Active Substance: FAMOTIDINE
     Dosage: 20 MG, QD
  6. ACYCLOVIR                          /00587301/ [Concomitant]
     Active Substance: ACYCLOVIR
     Dosage: 400 MG, BID
  7. CLONIDINE. [Concomitant]
     Active Substance: CLONIDINE
  8. HYDROCORTISONE. [Concomitant]
     Active Substance: HYDROCORTISONE
  9. SODIUM CHLORIDE. [Concomitant]
     Active Substance: SODIUM CHLORIDE
     Dosage: P.R.N
     Route: 045
  10. LOMOTIL [Concomitant]
     Active Substance: ATROPINE SULFATE\DIPHENOXYLATE HYDROCHLORIDE
     Dosage: P.R.N
  11. FOLIC ACID. [Concomitant]
     Active Substance: FOLIC ACID
     Dosage: 1 MG, QD
  12. DILTIAZEM [Concomitant]
     Active Substance: DILTIAZEM
     Dosage: 60 MG, BID
  13. ACTIGALL [Concomitant]
     Active Substance: URSODIOL
     Dosage: 300 MG, BID
  14. ARTIFICIAL TEARS                   /00445101/ [Concomitant]
     Dosage: P.R.N
  15. ATIVAN [Concomitant]
     Active Substance: LORAZEPAM
     Indication: NAUSEA
     Dosage: 1 MG, Q 6 HRS, P.R.N
  16. ATIVAN [Concomitant]
     Active Substance: LORAZEPAM
     Indication: VOMITING
  17. BIOTINE                            /00001702/ [Concomitant]
     Dosage: 5-6 TIMES A DAY
  18. NYSTATIN. [Concomitant]
     Active Substance: NYSTATIN
     Dosage: 100,000 UNITS/ML, QID
  19. VITAMIN D                          /00107901/ [Concomitant]
     Active Substance: ERGOCALCIFEROL
     Dosage: 2000 UT, QD

REACTIONS (2)
  - Stem cell transplant [Recovered/Resolved]
  - Graft versus host disease in skin [Recovering/Resolving]

NARRATIVE: CASE EVENT DATE: 20140702
